FAERS Safety Report 26066745 (Version 1)
Quarter: 2025Q4

REPORT INFORMATION
  Report Type: Spontaneous
  Country: CN (occurrence: CN)
  Receive Date: 20251119
  Receipt Date: 20251119
  Transmission Date: 20260117
  Serious: Yes (Hospitalization)
  Sender: ELI LILLY AND COMPANY
  Company Number: CN-Merck Healthcare KGaA-2025057918

PATIENT
  Age: 43 Year
  Sex: Male
  Weight: 45 kg

DRUGS (3)
  1. ERBITUX [Suspect]
     Active Substance: CETUXIMAB
     Indication: Gingival cancer
     Dosage: 700 MG, UNKNOWN
     Route: 041
     Dates: start: 20251017, end: 20251017
  2. DOCETAXEL [Suspect]
     Active Substance: DOCETAXEL
     Indication: Gingival cancer
     Dosage: 100 MG, DAILY
     Route: 041
     Dates: start: 20251017, end: 20251017
  3. CISPLATIN [Suspect]
     Active Substance: CISPLATIN
     Indication: Gingival cancer
     Dosage: 100 MG, DAILY
     Route: 041
     Dates: start: 20251017, end: 20251017

REACTIONS (1)
  - Myelosuppression [Recovering/Resolving]

NARRATIVE: CASE EVENT DATE: 20251027
